FAERS Safety Report 17295217 (Version 8)
Quarter: 2021Q3

REPORT INFORMATION
  Report Type: Spontaneous
  Country: US (occurrence: US)
  Receive Date: 20200121
  Receipt Date: 20210819
  Transmission Date: 20211014
  Serious: Yes (Other)
  Sender: FDA-Public Use
  Company Number: US-PFIZER INC-2020021450

PATIENT
  Age: 62 Year
  Sex: Female
  Weight: 83.45 kg

DRUGS (2)
  1. XELJANZ [Suspect]
     Active Substance: TOFACITINIB CITRATE
     Dosage: 5 MG, 1X/DAY
  2. XELJANZ [Suspect]
     Active Substance: TOFACITINIB CITRATE
     Dosage: 5 UNK

REACTIONS (13)
  - Precancerous lesion of digestive tract [Unknown]
  - Intestinal obstruction [Unknown]
  - Wrong dose [Unknown]
  - Depression [Unknown]
  - Polyp [Unknown]
  - Lung disorder [Unknown]
  - Ligament rupture [Unknown]
  - Post procedural complication [Unknown]
  - Rheumatoid arthritis [Unknown]
  - Anxiety [Unknown]
  - Pain in extremity [Unknown]
  - Asthma [Unknown]
  - Weight decreased [Unknown]
